FAERS Safety Report 16702315 (Version 2)
Quarter: 2019Q3

REPORT INFORMATION
  Report Type: Spontaneous
  Country: BE (occurrence: BE)
  Receive Date: 20190814
  Receipt Date: 20190816
  Transmission Date: 20191004
  Serious: Yes (Disabling)
  Sender: FDA-Public Use
  Company Number: BE-JNJFOC-20190812666

PATIENT
  Sex: Female
  Weight: 75 kg

DRUGS (4)
  1. RIVAROXABAN [Suspect]
     Active Substance: RIVAROXABAN
     Indication: PRODUCT USED FOR UNKNOWN INDICATION
     Dosage: UNK
     Route: 048
  2. OMEPRAZOLE. [Concomitant]
     Active Substance: OMEPRAZOLE
     Indication: GASTROOESOPHAGEAL REFLUX DISEASE
     Dosage: 1 DF, UNK
  3. GLUCOPHAGE [Concomitant]
     Active Substance: METFORMIN HYDROCHLORIDE
     Indication: GLUCOSE TOLERANCE IMPAIRED
     Dosage: 1 DF, UNK
  4. ALDACTAZINE [Concomitant]
     Active Substance: ALTHIAZIDE\SPIRONOLACTONE
     Indication: HYPERTENSION
     Dosage: .5 DF, UNK

REACTIONS (5)
  - Paraesthesia [Recovered/Resolved]
  - Skin irritation [Recovered/Resolved]
  - Feeling hot [Recovered/Resolved]
  - Blister [Recovered/Resolved]
  - Skin abrasion [Recovered/Resolved]

NARRATIVE: CASE EVENT DATE: 20181001
